FAERS Safety Report 11237462 (Version 1)
Quarter: 2015Q3

REPORT INFORMATION
  Report Type: Spontaneous
  Country: US (occurrence: US)
  Receive Date: 20150703
  Receipt Date: 20150703
  Transmission Date: 20151125
  Serious: No
  Sender: FDA-Public Use
  Company Number: US-BIOGENIDEC-2015BI091287

PATIENT
  Age: 35 Year
  Sex: Female

DRUGS (4)
  1. LUNESTA [Concomitant]
     Active Substance: ESZOPICLONE
  2. ZYPREXA [Concomitant]
     Active Substance: OLANZAPINE
  3. XANAX [Concomitant]
     Active Substance: ALPRAZOLAM
  4. AVONEX [Suspect]
     Active Substance: INTERFERON BETA-1A
     Indication: MULTIPLE SCLEROSIS
     Route: 030
     Dates: start: 20150413

REACTIONS (6)
  - Hypoaesthesia [Unknown]
  - Abasia [Unknown]
  - Paraesthesia [Unknown]
  - Asthenia [Unknown]
  - Multiple sclerosis relapse [Unknown]
  - Blindness unilateral [Unknown]
